FAERS Safety Report 10796122 (Version 1)
Quarter: 2015Q1

REPORT INFORMATION
  Report Type: Spontaneous
  Country: US (occurrence: US)
  Receive Date: 20150216
  Receipt Date: 20150216
  Transmission Date: 20150721
  Serious: No
  Sender: FDA-Public Use
  Company Number: US-BRISTOL-MYERS SQUIBB COMPANY-BMS-2015-007912

PATIENT
  Sex: Female

DRUGS (1)
  1. ELIQUIS [Suspect]
     Active Substance: APIXABAN

REACTIONS (6)
  - Nausea [Unknown]
  - Headache [Not Recovered/Not Resolved]
  - Erythema [Unknown]
  - Somnolence [Unknown]
  - Burning sensation [Unknown]
  - Dyskinesia [Unknown]
